FAERS Safety Report 24043554 (Version 1)
Quarter: 2024Q3

REPORT INFORMATION
  Report Type: Spontaneous
  Country: US (occurrence: US)
  Receive Date: 20240703
  Receipt Date: 20240703
  Transmission Date: 20241017
  Serious: Yes (Other)
  Sender: HETERO
  Company Number: US-AMAROX PHARMA-HET2024US02007

PATIENT
  Sex: Male

DRUGS (3)
  1. IRBESARTAN [Suspect]
     Active Substance: IRBESARTAN
     Indication: Blood pressure abnormal
     Dosage: 150 MILLIGRAM, BID
     Route: 048
  2. IRBESARTAN [Suspect]
     Active Substance: IRBESARTAN
     Dosage: 300 MILLIGRAM, QD
     Route: 048
  3. IRBESARTAN [Suspect]
     Active Substance: IRBESARTAN
     Dosage: 150 MILLIGRAM, BID
     Route: 048

REACTIONS (5)
  - Cardiac flutter [Not Recovered/Not Resolved]
  - Discomfort [Recovered/Resolved]
  - Dizziness [Not Recovered/Not Resolved]
  - Fatigue [Not Recovered/Not Resolved]
  - Intentional product use issue [Unknown]
